FAERS Safety Report 5348556-9 (Version None)
Quarter: 2007Q2

REPORT INFORMATION
  Report Type: 
  Country: None (occurrence: None)
  Receive Date: 20070605
  Receipt Date: 20070521
  Transmission Date: 20071010
  Serious: Yes (Other)
  Sender: FDA-Public Use
  Company Number: 100#08#2007-01779

PATIENT
  Age: 7 Year
  Sex: Male

DRUGS (1)
  1. OXYBUTYNIN [Suspect]
     Indication: ACCIDENTAL DRUG INTAKE BY CHILD
     Dosage: 10 MG, ONCE

REACTIONS (9)
  - ACCIDENTAL DRUG INTAKE BY CHILD [None]
  - ANOREXIA [None]
  - ANXIETY [None]
  - HALLUCINATIONS, MIXED [None]
  - HEADACHE [None]
  - PSYCHOMOTOR HYPERACTIVITY [None]
  - PSYCHOTIC DISORDER [None]
  - SPEECH DISORDER [None]
  - THINKING ABNORMAL [None]
